FAERS Safety Report 6688391-2 (Version None)
Quarter: 2010Q2

REPORT INFORMATION
  Report Type: 
  Country: None (occurrence: None)
  Receive Date: 20100420
  Receipt Date: 20100416
  Transmission Date: 20101027
  Serious: Yes (Other)
  Sender: FDA-Public Use
  Company Number: PHHY2010JP24560

PATIENT

DRUGS (1)
  1. PARLODEL [Suspect]
     Indication: ACROMEGALY
     Route: 048

REACTIONS (1)
  - NEOPLASM PROGRESSION [None]
